FAERS Safety Report 7351859-X (Version None)
Quarter: 2011Q1

REPORT INFORMATION
  Report Type: 
  Country: None (occurrence: None)
  Receive Date: 20110315
  Receipt Date: 20110303
  Transmission Date: 20110831
  Serious: Yes (Other)
  Sender: FDA-Public Use
  Company Number: US-AMGEN-USASP2011011308

PATIENT
  Sex: Female
  Weight: 62.585 kg

DRUGS (8)
  1. FOSAMAX [Concomitant]
     Dosage: 70 MG, UNK
     Dates: start: 20071204
  2. TENORMIN [Concomitant]
     Dosage: 50 MG, UNK
     Dates: start: 20071204
  3. HYDROCHLOROTHIAZIDE [Concomitant]
     Dosage: 12.5 UNK, UNK
     Dates: start: 20071204
  4. POTASSIUM                          /00031402/ [Concomitant]
     Dosage: 20 MEQ, UNK
     Dates: start: 20080909
  5. LIPITOR [Concomitant]
     Dosage: 20 MG, UNK
     Dates: start: 20071204
  6. NPLATE [Suspect]
     Indication: IDIOPATHIC THROMBOCYTOPENIC PURPURA
     Dosage: 150 A?G, UNK
     Dates: start: 20090908
  7. RITUXIMAB [Concomitant]
     Indication: IDIOPATHIC THROMBOCYTOPENIC PURPURA
  8. PREDNISONE [Concomitant]
     Indication: IDIOPATHIC THROMBOCYTOPENIC PURPURA

REACTIONS (3)
  - MARROW HYPERPLASIA [None]
  - BONE MARROW RETICULIN FIBROSIS [None]
  - MULTIPLE MYELOMA [None]
